FAERS Safety Report 8041158-5 (Version None)
Quarter: 2012Q1

REPORT INFORMATION
  Report Type: 
  Country: None (occurrence: None)
  Receive Date: 20120112
  Receipt Date: 20120102
  Transmission Date: 20120608
  Serious: Yes (Hospitalization, Disabling)
  Sender: FDA-Public Use
  Company Number: FR-JNJFOC-20120103285

PATIENT
  Age: 84 Year
  Sex: Male
  Weight: 58 kg

DRUGS (4)
  1. MEMANTINE HYDROCHLORIDE [Suspect]
     Indication: COGNITIVE DISORDER
     Route: 048
     Dates: end: 20111206
  2. ESCITALOPRAM OXALATE [Concomitant]
     Indication: PRODUCT USED FOR UNKNOWN INDICATION
     Route: 065
  3. ACETAMINOPHEN [Concomitant]
     Indication: PRODUCT USED FOR UNKNOWN INDICATION
     Route: 065
  4. TRAMADOL HCL [Suspect]
     Indication: PRODUCT USED FOR UNKNOWN INDICATION
     Route: 048
     Dates: end: 20111206

REACTIONS (3)
  - APATHY [None]
  - SOMNOLENCE [None]
  - DISTURBANCE IN ATTENTION [None]
